FAERS Safety Report 7133897-5 (Version None)
Quarter: 2010Q4

REPORT INFORMATION
  Report Type: 
  Country: None (occurrence: None)
  Receive Date: 20101203
  Receipt Date: 20101117
  Transmission Date: 20110411
  Serious: Yes (Hospitalization, Other)
  Sender: FDA-Public Use
  Company Number: US-BAYER-201047845GPV

PATIENT

DRUGS (5)
  1. VENTAVIS [Suspect]
     Route: 055
  2. TRACLEER [Suspect]
     Route: 065
     Dates: start: 20070221
  3. PROSTACYCLIN [Concomitant]
     Indication: PULMONARY ARTERIAL HYPERTENSION
     Route: 055
  4. CALCIUM CHANNEL BLOCKERS [Concomitant]
     Indication: PULMONARY ARTERIAL HYPERTENSION
  5. COUMADIN [Concomitant]

REACTIONS (1)
  - SUBDURAL HAEMATOMA [None]
